FAERS Safety Report 13123258 (Version 2)
Quarter: 2017Q2

REPORT INFORMATION
  Report Type: Spontaneous
  Country: TW (occurrence: TW)
  Receive Date: 20170117
  Receipt Date: 20170406
  Transmission Date: 20170830
  Serious: Yes (Hospitalization)
  Sender: FDA-Public Use
  Company Number: TW-PFIZER INC-2015320533

PATIENT
  Age: 10 Year
  Sex: Female
  Weight: 54 kg

DRUGS (2)
  1. FENTANYL CITRATE. [Suspect]
     Active Substance: FENTANYL CITRATE
     Indication: ANAESTHESIA
     Dosage: 100 UG (1.85UG/KG) ADMINISTERED IN 30 SECONDS
     Route: 042
  2. LIDOCAINE HCL [Suspect]
     Active Substance: LIDOCAINE HYDROCHLORIDE
     Indication: ANAESTHESIA
     Dosage: 50 MG (0.93 MG/KG) ADMINISTERED IN 3 SECONDS
     Route: 042

REACTIONS (1)
  - Epilepsy [Recovered/Resolved]
